FAERS Safety Report 22060546 (Version 2)
Quarter: 2023Q1

REPORT INFORMATION
  Report Type: Spontaneous
  Country: CA (occurrence: None)
  Receive Date: 20230303
  Receipt Date: 20230315
  Transmission Date: 20230418
  Serious: Yes (Other)
  Sender: FDA-Public Use
  Company Number: 2023A022704

PATIENT
  Age: 74 Year
  Sex: Female

DRUGS (2)
  1. SYMBICORT [Suspect]
     Active Substance: BUDESONIDE\FORMOTEROL FUMARATE DIHYDRATE
     Indication: Asthma
     Dosage: 200 UG/INHAL FOUR TIMES A DAY
     Route: 055
     Dates: start: 202212
  2. SYMBICORT [Suspect]
     Active Substance: BUDESONIDE\FORMOTEROL FUMARATE DIHYDRATE
     Indication: Asthma
     Dosage: 200 UG/INHAL FOUR TIMES A DAY
     Route: 055
     Dates: start: 2017

REACTIONS (8)
  - Dyspnoea [Recovered/Resolved]
  - Myocardial infarction [Unknown]
  - Cough [Recovered/Resolved]
  - Device use issue [Unknown]
  - Drug dose omission by device [Unknown]
  - Product storage error [Unknown]
  - Device defective [Unknown]
  - Drug ineffective [Recovered/Resolved]

NARRATIVE: CASE EVENT DATE: 20221201
